FAERS Safety Report 11792889 (Version 1)
Quarter: 2015Q4

REPORT INFORMATION
  Report Type: Spontaneous
  Country: US (occurrence: None)
  Receive Date: 20151201
  Receipt Date: 20151201
  Transmission Date: 20160305
  Serious: No
  Sender: FDA-Public Use
  Company Number: None

PATIENT
  Sex: Female

DRUGS (23)
  1. LORAZEPAN [Concomitant]
     Active Substance: LORAZEPAM
  2. ASPIRIN (BABY ASPIRIN) [Concomitant]
  3. CARVEDILOL (COREG) [Concomitant]
  4. CLINDAMYCIN PHOSPHATE. [Concomitant]
     Active Substance: CLINDAMYCIN PHOSPHATE
  5. NAPROXEN (NAPROSYN) [Concomitant]
  6. CITALOPRAM [Concomitant]
     Active Substance: CITALOPRAM HYDROBROMIDE
  7. KLOR-CON [Concomitant]
     Active Substance: POTASSIUM CHLORIDE
  8. ARIPEPRAZOLE [Concomitant]
  9. JANUVIA [Concomitant]
     Active Substance: SITAGLIPTIN PHOSPHATE
  10. BLOOD SUGAR DIAGNOSTIC (ACCU-CHECK ACTIVE TEST) [Concomitant]
  11. LORAZEPAM (ATIVAN) [Concomitant]
  12. LASIX [Concomitant]
     Active Substance: FUROSEMIDE
  13. ENALAPRIL (VASOTEC) [Concomitant]
  14. METFORMIN (GLUCOPHAGE) [Concomitant]
  15. SIMVASTATIN (ZOCOR) [Concomitant]
  16. TRAMADOL. [Suspect]
     Active Substance: TRAMADOL
     Indication: MENTAL DISORDER
     Dosage: 4 PILLS TWICE A DAY LOROAZEPAM 0.5 MG AM PM ?TWICE DAILY ?AT BEDTIME ???TAKE 1-2 TABLETS UP TO FOUR TIMES A DAY AS NEEDED FOR PAIN -  60 TABLETS
     Route: 048
     Dates: start: 20150625
  17. ADVAIR DISKUS [Concomitant]
     Active Substance: FLUTICASONE PROPIONATE\SALMETEROL XINAFOATE
  18. RALOXIFENE (EVISTA) [Concomitant]
  19. VITAMIN D [Concomitant]
     Active Substance: CHOLECALCIFEROL
  20. AMANTADINE [Concomitant]
     Active Substance: AMANTADINE
  21. HYDROCHLOROTHIAZIDE (HYDRODIURIL) [Concomitant]
  22. BUSPIRONE [Concomitant]
     Active Substance: BUSPIRONE HYDROCHLORIDE
  23. SPIRONOLACTONE (ALDACTONE) [Concomitant]

REACTIONS (1)
  - Weight increased [None]
